FAERS Safety Report 8154469-X (Version None)
Quarter: 2012Q1

REPORT INFORMATION
  Report Type: 
  Country: None (occurrence: None)
  Receive Date: 20120221
  Receipt Date: 20120214
  Transmission Date: 20120608
  Serious: Yes (Other)
  Sender: FDA-Public Use
  Company Number: CA-B.I. PHARMACEUTICALS,INC./RIDGEFIELD-2012-CN-00369CN

PATIENT
  Age: 78 Year
  Sex: Female
  Weight: 40 kg

DRUGS (13)
  1. PANTOPRAZOLE SODIUM [Concomitant]
     Route: 048
  2. ACTONEL [Concomitant]
     Route: 048
  3. ALDACTONE [Concomitant]
     Route: 048
  4. ACETAMINOPHEN [Concomitant]
     Route: 048
  5. BISOPROLOL FUMARATE [Concomitant]
     Route: 048
  6. LIPITOR [Concomitant]
     Route: 048
  7. AMIODARONE HCL [Concomitant]
     Route: 048
  8. LASIX [Concomitant]
     Route: 048
  9. HYDROCHLOROTHIAZIDE [Concomitant]
     Route: 048
  10. ATACAND [Concomitant]
     Route: 048
  11. RASILEZ [Concomitant]
     Route: 048
  12. PRADAXA [Suspect]
     Dosage: 220 MG
     Route: 048
  13. CALCIUM + VITAMIN D [Concomitant]
     Route: 048

REACTIONS (1)
  - PROTHROMBIN TIME PROLONGED [None]
